FAERS Safety Report 10470020 (Version 2)
Quarter: 2014Q4

REPORT INFORMATION
  Report Type: Spontaneous
  Country: US (occurrence: US)
  Receive Date: 20140923
  Receipt Date: 20141219
  Transmission Date: 20150528
  Serious: No
  Sender: FDA-Public Use
  Company Number: US-SHIONOGI, INC-2014000762

PATIENT
  Age: 69 Year
  Sex: Female

DRUGS (8)
  1. OSPHENA [Suspect]
     Active Substance: OSPEMIFENE
     Indication: OFF LABEL USE
  2. ZETIA [Concomitant]
     Active Substance: EZETIMIBE
     Dosage: 10 MG, QD
  3. VITAMIN D                          /00107901/ [Concomitant]
     Active Substance: ERGOCALCIFEROL
     Dosage: 2500 MG, QD
  4. OSPHENA [Suspect]
     Active Substance: OSPEMIFENE
     Indication: VULVOVAGINAL DRYNESS
     Dosage: 60 MG QD
     Route: 048
     Dates: start: 20140716
  5. RECLAST [Concomitant]
     Active Substance: ZOLEDRONIC ACID
     Dosage: ONCE YEARLY
     Route: 042
  6. PROBIOTIC                          /06395501/ [Concomitant]
     Dosage: UNK, QD
  7. KRILL OIL [Concomitant]
     Active Substance: DIETARY SUPPLEMENT
     Dosage: 300 MG, QD
  8. MIRALAX [Concomitant]
     Active Substance: POLYETHYLENE GLYCOL 3350
     Dosage: 8 MG, QD

REACTIONS (3)
  - Labelled drug-food interaction medication error [Unknown]
  - Intentional product use issue [Unknown]
  - Off label use [Unknown]

NARRATIVE: CASE EVENT DATE: 20140716
